FAERS Safety Report 9410983 (Version 2)
Quarter: 2013Q3

REPORT INFORMATION
  Report Type: Spontaneous
  Country: US (occurrence: US)
  Receive Date: 20130719
  Receipt Date: 20130730
  Transmission Date: 20140515
  Serious: Yes (Other)
  Sender: FDA-Public Use
  Company Number: US-TMC-CABO-13002985

PATIENT
  Sex: Male

DRUGS (1)
  1. COMETRIQ [Suspect]
     Indication: MEDULLARY THYROID CANCER
     Route: 048

REACTIONS (1)
  - Rib fracture [Recovering/Resolving]
